FAERS Safety Report 4772727-3 (Version None)
Quarter: 2005Q3

REPORT INFORMATION
  Report Type: 
  Country: None (occurrence: None)
  Receive Date: 20050919
  Receipt Date: 20050908
  Transmission Date: 20060218
  Serious: Yes (Hospitalization, Disabling)
  Sender: FDA-Public Use
  Company Number: GB-SANOFI-SYNTHELABO-A01200506162

PATIENT
  Age: 64 Year
  Sex: Male

DRUGS (6)
  1. HYDROXYCHLOROQUINE SULFATE [Suspect]
     Route: 048
     Dates: start: 20050607, end: 20050824
  2. ATORVASTATIN [Concomitant]
     Route: 048
  3. ENALAPRIL [Concomitant]
     Route: 048
  4. METFORMIN [Concomitant]
     Route: 048
  5. GLIPIZIDE [Concomitant]
     Route: 048
  6. SULFASALAZINE [Concomitant]
     Route: 048

REACTIONS (1)
  - HAEMORRHAGE INTRACRANIAL [None]
